FAERS Safety Report 16667700 (Version 1)
Quarter: 2019Q3

REPORT INFORMATION
  Report Type: Spontaneous
  Country: FR (occurrence: FR)
  Receive Date: 20190805
  Receipt Date: 20190805
  Transmission Date: 20191004
  Serious: Yes (Other)
  Sender: FDA-Public Use
  Company Number: FR-PFIZER INC-2019329432

PATIENT
  Age: 46 Year
  Sex: Male

DRUGS (2)
  1. XANAX [Suspect]
     Active Substance: ALPRAZOLAM
     Dosage: 1 G, (TWO TABKET 0.5 MG) SINGLE DOSE
     Route: 048
     Dates: start: 20171230, end: 20171230
  2. LYSANXIA [Suspect]
     Active Substance: PRAZEPAM
     Dosage: 2 DF, SINGLE
     Route: 048
     Dates: start: 20171230, end: 20171230

REACTIONS (3)
  - Suicide attempt [Unknown]
  - Toxicity to various agents [Recovered/Resolved]
  - Somnolence [Recovered/Resolved]

NARRATIVE: CASE EVENT DATE: 20171230
